FAERS Safety Report 21446759 (Version 1)
Quarter: 2022Q4

REPORT INFORMATION
  Report Type: Spontaneous
  Country: US (occurrence: US)
  Receive Date: 20221012
  Receipt Date: 20221012
  Transmission Date: 20230112
  Serious: No
  Sender: FDA-Public Use
  Company Number: US-PFIZER INC-2021218154

PATIENT
  Age: 58 Year
  Sex: Male
  Weight: 68.04 kg

DRUGS (1)
  1. RAPAMUNE [Suspect]
     Active Substance: SIROLIMUS
     Indication: Liver transplant
     Dosage: 3 MG, DAILY (1 MG; 3 TABLETS DAILY BY MOUTH)
     Route: 048
     Dates: start: 2004

REACTIONS (2)
  - Off label use [Unknown]
  - Joint swelling [Unknown]

NARRATIVE: CASE EVENT DATE: 20040101
